FAERS Safety Report 11472821 (Version 1)
Quarter: 2015Q3

REPORT INFORMATION
  Report Type: Spontaneous
  Country: US (occurrence: US)
  Receive Date: 20150908
  Receipt Date: 20150908
  Transmission Date: 20151125
  Serious: Yes (Other)
  Sender: FDA-Public Use
  Company Number: US-APOTEX-2015AP012490

PATIENT
  Age: 25 Year
  Sex: Male

DRUGS (2)
  1. ADDERALL [Concomitant]
     Active Substance: AMPHETAMINE ASPARTATE\AMPHETAMINE SULFATE\DEXTROAMPHETAMINE SACCHARATE\DEXTROAMPHETAMINE SULFATE
     Indication: PRODUCT USED FOR UNKNOWN INDICATION
     Dosage: UNK
     Route: 065
  2. PAXIL [Suspect]
     Active Substance: PAROXETINE HYDROCHLORIDE
     Indication: PRODUCT USED FOR UNKNOWN INDICATION
     Dosage: 20 MG, QD
     Route: 065
     Dates: start: 20150722

REACTIONS (8)
  - Memory impairment [Unknown]
  - Sleep disorder [Unknown]
  - Dyskinesia [Unknown]
  - Eye injury [Unknown]
  - Abnormal behaviour [Unknown]
  - Abnormal sleep-related event [Unknown]
  - Lip swelling [Unknown]
  - Somnambulism [Unknown]

NARRATIVE: CASE EVENT DATE: 201508
